FAERS Safety Report 7730955-9 (Version None)
Quarter: 2011Q3

REPORT INFORMATION
  Report Type: 
  Country: None (occurrence: None)
  Receive Date: 20110831
  Receipt Date: 20110817
  Transmission Date: 20111222
  Serious: Yes (Other)
  Sender: FDA-Public Use
  Company Number: FK201101759

PATIENT
  Age: 14 Year
  Sex: Female

DRUGS (6)
  1. VINCRISTINE [Suspect]
     Indication: MEDULLOBLASTOMA
  2. CISPLATIN [Suspect]
     Indication: MEDULLOBLASTOMA
  3. METHOTREXATE [Suspect]
     Indication: MEDULLOBLASTOMA
     Dosage: INTRATHECAL
     Route: 037
  4. ETOPOSIDE [Suspect]
     Indication: MEDULLOBLASTOMA
  5. CYCLOPHOSPHAMIDE [Suspect]
     Indication: MEDULLOBLASTOMA
  6. DEXAMETHASONE SODIUM PHOSPHATE [Suspect]
     Indication: MEDULLOBLASTOMA

REACTIONS (6)
  - SPEECH DISORDER [None]
  - VIITH NERVE PARALYSIS [None]
  - CD4 LYMPHOCYTES DECREASED [None]
  - ENCEPHALITIS HERPES [None]
  - LYMPHOPENIA [None]
  - EPSTEIN-BARR VIRUS ASSOCIATED LYMPHOPROLIFERATIVE DISORDER [None]
